FAERS Safety Report 6290156-0 (Version None)
Quarter: 2009Q3

REPORT INFORMATION
  Report Type: 
  Country: None (occurrence: None)
  Receive Date: 20090730
  Receipt Date: 20081217
  Transmission Date: 20100115
  Serious: No
  Sender: FDA-Public Use
  Company Number: US-BRISTOL-MYERS SQUIBB COMPANY-14446348

PATIENT
  Age: 78 Year
  Sex: Female

DRUGS (3)
  1. COUMADIN [Interacting]
     Dates: start: 20060911
  2. ASACOL [Suspect]
  3. NON-MEDICINAL PRODUCT [Interacting]

REACTIONS (3)
  - FOOD INTERACTION [None]
  - INTERNATIONAL NORMALISED RATIO DECREASED [None]
  - INTERNATIONAL NORMALISED RATIO INCREASED [None]
